FAERS Safety Report 8096669-3 (Version None)
Quarter: 2012Q1

REPORT INFORMATION
  Report Type: 
  Country: None (occurrence: None)
  Receive Date: 20120129
  Receipt Date: 20111128
  Transmission Date: 20120608
  Serious: No
  Sender: FDA-Public Use
  Company Number: US-ABBOTT-11P-163-0880165-00

PATIENT
  Sex: Female

DRUGS (2)
  1. HUMIRA [Suspect]
     Indication: RHEUMATOID ARTHRITIS
     Route: 058
     Dates: start: 20110322
  2. EFFEXOR [Concomitant]
     Indication: DEPRESSION

REACTIONS (4)
  - SOCIAL PHOBIA [None]
  - DEPRESSED MOOD [None]
  - ANXIETY [None]
  - ANTISOCIAL BEHAVIOUR [None]
